FAERS Safety Report 4414442-1 (Version None)
Quarter: 2004Q3

REPORT INFORMATION
  Report Type: 
  Country: None (occurrence: None)
  Receive Date: 20040803
  Receipt Date: 20040726
  Transmission Date: 20050211
  Serious: Yes (Hospitalization)
  Sender: FDA-Public Use
  Company Number: US-MERCK-0407USA02310

PATIENT
  Age: 71 Year
  Sex: Female

DRUGS (5)
  1. ALBUTEROL [Concomitant]
     Route: 065
  2. SYNTHROID [Concomitant]
     Indication: ASTHMA
     Route: 065
  3. SINGULAIR [Concomitant]
     Route: 065
  4. VIOXX [Suspect]
     Indication: OSTEOARTHRITIS
     Route: 048
     Dates: end: 20040726
  5. SEREVENT [Concomitant]
     Route: 065

REACTIONS (1)
  - ASTHMA [None]
